FAERS Safety Report 4659045-9 (Version None)
Quarter: 2005Q2

REPORT INFORMATION
  Report Type: 
  Country: None (occurrence: None)
  Receive Date: 20050509
  Receipt Date: 20050426
  Transmission Date: 20051028
  Serious: Yes (Other)
  Sender: FDA-Public Use
  Company Number: A0555856A

PATIENT
  Age: 85 Year
  Sex: Male

DRUGS (3)
  1. DYAZIDE [Suspect]
     Indication: HYPERTENSION
     Dosage: PER DAY/ORAL
     Route: 048
  2. MULTI-VITAMIN [Concomitant]
  3. CALCIUM SALT [Concomitant]

REACTIONS (6)
  - DIARRHOEA [None]
  - DRUG INEFFECTIVE [None]
  - OEDEMA [None]
  - SECRETION DISCHARGE [None]
  - VISUAL ACUITY REDUCED [None]
  - WEIGHT DECREASED [None]
